FAERS Safety Report 15634165 (Version 2)
Quarter: 2018Q4

REPORT INFORMATION
  Report Type: Report from Study
  Country: US (occurrence: US)
  Receive Date: 20181119
  Receipt Date: 20181122
  Transmission Date: 20190205
  Serious: No
  Sender: FDA-Public Use
  Company Number: PHEH2018US048079

PATIENT
  Sex: Male
  Weight: 61 kg

DRUGS (2)
  1. OMNITROP [Suspect]
     Active Substance: SOMATROPIN
     Indication: GROWTH HORMONE DEFICIENCY
     Dosage: 1.8 MG, QD
     Route: 058
  2. OMNITROP [Suspect]
     Active Substance: SOMATROPIN
     Indication: SECONDARY HYPOTHYROIDISM

REACTIONS (2)
  - Insulin-like growth factor increased [Unknown]
  - Injection site bruising [Unknown]
